FAERS Safety Report 4989504-0 (Version None)
Quarter: 2006Q2

REPORT INFORMATION
  Report Type: 
  Country: None (occurrence: None)
  Receive Date: 20060502
  Receipt Date: 20050928
  Transmission Date: 20061013
  Serious: Yes (Death, Hospitalization, Other)
  Sender: FDA-Public Use
  Company Number: US-MERCK-0509USA04821

PATIENT
  Age: 56 Year
  Sex: Female
  Weight: 143 kg

DRUGS (6)
  1. VIOXX [Suspect]
     Indication: BACK PAIN
     Route: 048
     Dates: start: 19990907, end: 20030101
  2. VIOXX [Suspect]
     Route: 048
     Dates: start: 19990907, end: 20030101
  3. VIOXX [Suspect]
     Indication: SHOULDER PAIN
     Route: 048
     Dates: start: 19990907, end: 20030101
  4. VIOXX [Suspect]
     Route: 048
     Dates: start: 19990907, end: 20030101
  5. ULTRAM [Concomitant]
     Route: 065
  6. NEURONTIN [Concomitant]
     Route: 065

REACTIONS (7)
  - ARTHRALGIA [None]
  - BACK PAIN [None]
  - CEREBROVASCULAR ACCIDENT [None]
  - DEATH [None]
  - METASTASIS [None]
  - METRORRHAGIA [None]
  - OVERDOSE [None]
